FAERS Safety Report 5063404-2 (Version None)
Quarter: 2006Q3

REPORT INFORMATION
  Report Type: 
  Country: None (occurrence: None)
  Receive Date: 20060727
  Receipt Date: 20060301
  Transmission Date: 20061208
  Serious: Yes (Hospitalization)
  Sender: FDA-Public Use
  Company Number: US-ROCHE-438838

PATIENT
  Age: 15 Year
  Sex: Female
  Weight: 49.9 kg

DRUGS (3)
  1. ACCUTANE [Suspect]
     Indication: ACNE
     Route: 048
     Dates: start: 19940127, end: 19940713
  2. ACCUTANE [Suspect]
     Route: 048
     Dates: start: 19930815
  3. SELDANE [Concomitant]

REACTIONS (22)
  - ANAEMIA [None]
  - ANXIETY [None]
  - BLOOD CHOLESTEROL INCREASED [None]
  - COLITIS [None]
  - CROHN'S DISEASE [None]
  - CUSHINGOID [None]
  - DEPRESSION [None]
  - DIVERTICULUM [None]
  - DRY SKIN [None]
  - EYELID PAIN [None]
  - GASTROINTESTINAL TRACT ADENOMA [None]
  - GASTROINTESTINAL ULCER [None]
  - HAEMORRHOIDS [None]
  - HERPES SIMPLEX [None]
  - INFLAMMATORY BOWEL DISEASE [None]
  - LABORATORY TEST ABNORMAL [None]
  - NIGHT BLINDNESS [None]
  - PEPTIC ULCER [None]
  - POLYP [None]
  - RECTAL HAEMORRHAGE [None]
  - SMALL INTESTINAL OBSTRUCTION [None]
  - ULCERATIVE KERATITIS [None]
